FAERS Safety Report 23863617 (Version 1)
Quarter: 2024Q2

REPORT INFORMATION
  Report Type: Spontaneous
  Country: US (occurrence: US)
  Receive Date: 20240516
  Receipt Date: 20240516
  Transmission Date: 20240716
  Serious: Yes (Other)
  Sender: FDA-Public Use
  Company Number: US-SANOFI-02042026

PATIENT
  Age: 75 Year
  Sex: Male

DRUGS (1)
  1. TOUJEO [Suspect]
     Active Substance: INSULIN GLARGINE
     Indication: Type 2 diabetes mellitus
     Dosage: 52 UNITS IN THE MORNING, 28 UNITS IN THE EVENING, BID
     Route: 058

REACTIONS (4)
  - Cataract [Unknown]
  - Vision blurred [Unknown]
  - Hypoacusis [Unknown]
  - Off label use [Unknown]
